FAERS Safety Report 10155549 (Version 3)
Quarter: 2014Q4

REPORT INFORMATION
  Report Type: Spontaneous
  Country: CA (occurrence: CA)
  Receive Date: 20140506
  Receipt Date: 20141203
  Transmission Date: 20150528
  Serious: Yes (Hospitalization, Other)
  Sender: FDA-Public Use
  Company Number: CA-BRISTOL-MYERS SQUIBB COMPANY-20676383

PATIENT
  Age: 4 Decade
  Sex: Female

DRUGS (2)
  1. MULTIVITAMIN [Concomitant]
     Active Substance: VITAMINS
  2. SPRYCEL [Suspect]
     Active Substance: DASATINIB
     Indication: CHRONIC MYELOID LEUKAEMIA
     Dosage: HELD ON 9APR2014; RESTART ON 14MAY14
     Route: 048
     Dates: start: 20130530

REACTIONS (2)
  - Thrombocytopenia [Unknown]
  - Demyelinating polyneuropathy [Unknown]
